FAERS Safety Report 4882358-2 (Version None)
Quarter: 2006Q1

REPORT INFORMATION
  Report Type: 
  Country: None (occurrence: None)
  Receive Date: 20060117
  Receipt Date: 20060106
  Transmission Date: 20060701
  Serious: Yes (Hospitalization)
  Sender: FDA-Public Use
  Company Number: FR-ROCHE-431773

PATIENT
  Age: 35 Year
  Sex: Female

DRUGS (3)
  1. RIVOTRIL [Suspect]
     Route: 065
  2. SEVREDOL [Concomitant]
     Indication: DRUG USE FOR UNKNOWN INDICATION
     Dosage: REPORTED AS '5 DOSES OF'
     Route: 065
  3. DURAGESIC-100 [Concomitant]
     Indication: DRUG USE FOR UNKNOWN INDICATION
     Dosage: UNKNOWN DOSAGE
     Route: 050

REACTIONS (1)
  - EPILEPSY [None]
